FAERS Safety Report 6542313-3 (Version None)
Quarter: 2010Q1

REPORT INFORMATION
  Report Type: 
  Country: None (occurrence: None)
  Receive Date: 20100119
  Receipt Date: 20100108
  Transmission Date: 20100710
  Serious: Yes (Hospitalization, Disabling, Other)
  Sender: FDA-Public Use
  Company Number: US-MERCK-0902USA00148

PATIENT
  Age: 62 Year
  Sex: Female

DRUGS (5)
  1. FOSAMAX [Suspect]
     Indication: OSTEOPOROSIS
     Route: 048
     Dates: start: 20040101, end: 20070101
  2. FOSAMAX [Suspect]
     Route: 065
     Dates: start: 20010529, end: 20080201
  3. FOSAMAX [Suspect]
     Indication: FIBROMYALGIA
     Route: 048
     Dates: start: 20040101, end: 20070101
  4. FOSAMAX [Suspect]
     Route: 065
     Dates: start: 20010529, end: 20080201
  5. [THERAPY UNSPECIFIED] [Concomitant]
     Indication: HYPERTENSION
     Route: 065
     Dates: start: 20010101

REACTIONS (38)
  - ABDOMINAL DISCOMFORT [None]
  - ANXIETY [None]
  - BACK INJURY [None]
  - BLISTER [None]
  - BRUXISM [None]
  - DENTAL CARIES [None]
  - DENTAL DISCOMFORT [None]
  - DEPRESSION [None]
  - DIABETES MELLITUS [None]
  - DIZZINESS [None]
  - DRUG HYPERSENSITIVITY [None]
  - EDENTULOUS [None]
  - EXOSTOSIS [None]
  - EYE SWELLING [None]
  - FATIGUE [None]
  - FRUSTRATION [None]
  - GINGIVAL INFECTION [None]
  - IMPAIRED HEALING [None]
  - JAW DISORDER [None]
  - JOINT RANGE OF MOTION DECREASED [None]
  - MAJOR DEPRESSION [None]
  - MENTAL DISORDER [None]
  - MUSCLE SPASMS [None]
  - ORAL DISORDER [None]
  - ORAL INFECTION [None]
  - OSTEONECROSIS [None]
  - OSTEORADIONECROSIS [None]
  - PARAESTHESIA [None]
  - POST-TRAUMATIC STRESS DISORDER [None]
  - PSYCHOTIC DISORDER [None]
  - ROAD TRAFFIC ACCIDENT [None]
  - SLEEP APNOEA SYNDROME [None]
  - STOMATITIS [None]
  - SWELLING [None]
  - TEMPOROMANDIBULAR JOINT SYNDROME [None]
  - TOOTH DISORDER [None]
  - TRISMUS [None]
  - WEIGHT INCREASED [None]
